FAERS Safety Report 5463647-X (Version None)
Quarter: 2007Q3

REPORT INFORMATION
  Report Type: 
  Country: None (occurrence: None)
  Receive Date: 20070920
  Receipt Date: 20070905
  Transmission Date: 20080115
  Serious: No
  Sender: FDA-Public Use
  Company Number: CO-MERCK-0708COL00005

PATIENT
  Age: 24 Year
  Sex: Male

DRUGS (2)
  1. CANCIDAS [Suspect]
     Indication: CANDIDIASIS
     Route: 065
     Dates: start: 20070801, end: 20070801
  2. FLUCONAZOLE [Concomitant]
     Indication: CANDIDIASIS
     Route: 065
     Dates: start: 20070801, end: 20070801

REACTIONS (1)
  - NO THERAPEUTIC RESPONSE [None]
